FAERS Safety Report 4518717-7 (Version None)
Quarter: 2004Q4

REPORT INFORMATION
  Report Type: 
  Country: None (occurrence: None)
  Receive Date: 20041201
  Receipt Date: 20041117
  Transmission Date: 20050328
  Serious: Yes (Hospitalization)
  Sender: FDA-Public Use
  Company Number: 2004241259US

PATIENT
  Age: 74 Year
  Sex: Female
  Weight: 63 kg

DRUGS (4)
  1. CLEOCIN HCL [Suspect]
     Indication: SIALOADENITIS
     Dosage: 600 MG (150 MG, QID), ORAL
     Route: 048
     Dates: start: 20040901, end: 20040907
  2. RALOXIFENE HCL [Concomitant]
  3. VANCOMYCIN [Concomitant]
  4. METRONIDAZOLE [Concomitant]

REACTIONS (4)
  - CHILLS [None]
  - CLOSTRIDIUM COLITIS [None]
  - COLD SWEAT [None]
  - HEADACHE [None]
